FAERS Safety Report 5678141-0 (Version None)
Quarter: 2008Q1

REPORT INFORMATION
  Report Type: 
  Country: None (occurrence: None)
  Receive Date: 20080324
  Receipt Date: 20080324
  Transmission Date: 20080703
  Serious: Yes (Other)
  Sender: FDA-Public Use
  Company Number: None

PATIENT
  Age: 53 Year
  Sex: Female
  Weight: 69.4003 kg

DRUGS (1)
  1. PAREMYD [Suspect]
     Indication: OPHTHALMOLOGICAL EXAMINATION
     Dosage: CONTACT ALBANY EYE CARE ALBAN  CONTACT ALBANY EYE
     Dates: start: 20080319, end: 20080319

REACTIONS (7)
  - DIZZINESS [None]
  - HEADACHE [None]
  - HYPERHIDROSIS [None]
  - LACRIMATION INCREASED [None]
  - NAUSEA [None]
  - PALPITATIONS [None]
  - VISION BLURRED [None]
